FAERS Safety Report 9380675 (Version 1)
Quarter: 2013Q3

REPORT INFORMATION
  Report Type: Report from Study
  Country: US (occurrence: US)
  Receive Date: 20130702
  Receipt Date: 20130702
  Transmission Date: 20140515
  Serious: Yes (Other)
  Sender: FDA-Public Use
  Company Number: US-US-EMD SERONO, INC.-7221337

PATIENT
  Age: 56 Year
  Sex: Male
  Weight: 76 kg

DRUGS (5)
  1. REBIF [Suspect]
     Indication: MULTIPLE SCLEROSIS
     Route: 058
     Dates: start: 20120827
  2. REBIF [Suspect]
     Route: 058
  3. VICODIN [Concomitant]
     Indication: BACK PAIN
     Dosage: 5.5
     Route: 048
     Dates: start: 201208
  4. TRIAMTERENE AND HYDROCHLOROTHIAZID [Concomitant]
     Indication: HYPERTENSION
     Dosage: 37.5/25 MG
     Route: 048
     Dates: start: 201302
  5. CITALOPRAM                         /00582602/ [Concomitant]
     Indication: DEPRESSION
     Route: 048
     Dates: start: 201305

REACTIONS (2)
  - Cerebrovascular accident [Unknown]
  - Amaurosis fugax [Recovered/Resolved]
